FAERS Safety Report 8304381-8 (Version None)
Quarter: 2012Q2

REPORT INFORMATION
  Report Type: 
  Country: None (occurrence: None)
  Receive Date: 20120423
  Receipt Date: 20120410
  Transmission Date: 20120825
  Serious: No
  Sender: FDA-Public Use
  Company Number: US-ELI_LILLY_AND_COMPANY-US201203006946

PATIENT
  Age: 18 Year
  Sex: Male

DRUGS (3)
  1. CYMBALTA [Suspect]
     Dosage: 30 MG, QD
     Route: 048
  2. STRATTERA [Suspect]
     Indication: ATTENTION DEFICIT/HYPERACTIVITY DISORDER
     Dosage: 40 MG, QD
     Dates: start: 20090401
  3. CYMBALTA [Suspect]
     Indication: DEPRESSION
     Dosage: 60 MG, QD
     Route: 048
     Dates: start: 20090501

REACTIONS (13)
  - NIGHT SWEATS [None]
  - SPECIFIC GRAVITY URINE INCREASED [None]
  - HALLUCINATION [None]
  - UROBILINOGEN URINE INCREASED [None]
  - HYPERBILIRUBINAEMIA [None]
  - INSOMNIA [None]
  - BLOOD GLUCOSE INCREASED [None]
  - BLOOD POTASSIUM DECREASED [None]
  - PANIC ATTACK [None]
  - FATIGUE [None]
  - FEELING ABNORMAL [None]
  - PROTEINURIA [None]
  - SOMNOLENCE [None]
